FAERS Safety Report 8329039-0 (Version None)
Quarter: 2012Q2

REPORT INFORMATION
  Report Type: 
  Country: None (occurrence: None)
  Receive Date: 20120502
  Receipt Date: 20120424
  Transmission Date: 20120825
  Serious: Yes (Other)
  Sender: FDA-Public Use
  Company Number: US-JNJFOC-20120106945

PATIENT
  Sex: Female
  Weight: 55.79 kg

DRUGS (13)
  1. SIMVASTATIN [Concomitant]
     Indication: BLOOD CHOLESTEROL
     Route: 048
  2. SOTALOL HCL [Concomitant]
     Indication: BLOOD PRESSURE
  3. PRADAXA [Concomitant]
  4. XARELTO [Suspect]
     Indication: ATRIAL FIBRILLATION
     Route: 048
     Dates: start: 20120101
  5. XANAX [Concomitant]
     Route: 048
  6. BISOPROLOL FUMARATE [Concomitant]
     Route: 048
  7. OMEPRAZOLE [Concomitant]
     Route: 048
  8. XARELTO [Suspect]
     Route: 048
     Dates: start: 20111201, end: 20111201
  9. LOSARTAN POTASSIUM [Suspect]
     Indication: HYPERTENSION
     Route: 048
     Dates: start: 20111201, end: 20120119
  10. CALCIUM [Concomitant]
     Route: 048
  11. BUNITROLOL [Concomitant]
     Indication: BLOOD PRESSURE
     Route: 048
  12. MULTIPLE VITAMIN [Concomitant]
     Route: 048
  13. PREMARIN [Concomitant]
     Route: 048

REACTIONS (7)
  - ASTHENIA [None]
  - DYSPHAGIA [None]
  - SWOLLEN TONGUE [None]
  - EPISTAXIS [None]
  - EATING DISORDER [None]
  - HEADACHE [None]
  - DIZZINESS [None]
